FAERS Safety Report 18184116 (Version 1)
Quarter: 2020Q3

REPORT INFORMATION
  Report Type: Other
  Country: CA (occurrence: CA)
  Receive Date: 20200823
  Receipt Date: 20200823
  Transmission Date: 20201103
  Serious: Yes (Other)
  Sender: FDA-Public Use
  Company Number: CA-GLENMARK PHARMACEUTICALS-2020GMK049179

PATIENT

DRUGS (7)
  1. ESOMEPRAZOLE. [Concomitant]
     Active Substance: ESOMEPRAZOLE MAGNESIUM
     Indication: PRODUCT USED FOR UNKNOWN INDICATION
     Dosage: UNK
     Route: 065
  2. ESBRIET [Suspect]
     Active Substance: PIRFENIDONE
     Indication: IDIOPATHIC PULMONARY FIBROSIS
     Dosage: 801 MILLIGRAM, TID (3 EVERY 1 DAYS)
     Route: 048
  3. METFORMIN [Concomitant]
     Active Substance: METFORMIN HYDROCHLORIDE
     Indication: PRODUCT USED FOR UNKNOWN INDICATION
     Dosage: UNK
     Route: 065
  4. SALBUTAMOL [Concomitant]
     Active Substance: ALBUTEROL
     Indication: PRODUCT USED FOR UNKNOWN INDICATION
     Dosage: UNK
     Route: 065
  5. ESBRIET [Suspect]
     Active Substance: PIRFENIDONE
     Dosage: 267 MILLIGRAM, TID
     Route: 048
  6. ROSUVASTATIN. [Concomitant]
     Active Substance: ROSUVASTATIN
     Indication: PRODUCT USED FOR UNKNOWN INDICATION
     Dosage: UNK
     Route: 065
  7. GABAPENTIN. [Suspect]
     Active Substance: GABAPENTIN
     Indication: PRODUCT USED FOR UNKNOWN INDICATION
     Dosage: UNK
     Route: 065

REACTIONS (21)
  - Stress [Unknown]
  - Decreased appetite [Unknown]
  - Vomiting [Unknown]
  - Lethargy [Unknown]
  - Oropharyngeal pain [Unknown]
  - Headache [Unknown]
  - Sedation [Unknown]
  - Nausea [Unknown]
  - Hyperhidrosis [Unknown]
  - Neuralgia [Unknown]
  - Ageusia [Unknown]
  - Abdominal pain upper [Unknown]
  - Dyspnoea [Unknown]
  - Haemoptysis [Unknown]
  - Pulmonary function test abnormal [Unknown]
  - Constipation [Unknown]
  - Weight increased [Unknown]
  - Mobility decreased [Unknown]
  - Gait disturbance [Unknown]
  - Fatigue [Unknown]
  - Cough [Unknown]
